FAERS Safety Report 8798307 (Version 2)
Quarter: 2012Q4

REPORT INFORMATION
  Report Type: Spontaneous
  Country: US (occurrence: None)
  Receive Date: 20120913
  Receipt Date: 20120920
  Transmission Date: 20130627
  Serious: Yes (Death)
  Sender: FDA-Public Use
  Company Number: JPI-P-024994

PATIENT
  Age: 43 Year
  Sex: Male

DRUGS (6)
  1. XYREM (500 MILLIGRAM/ MILLILITERS, SOLUTION) (SODIUM OXYBATE) [Suspect]
     Indication: FIBROMYALGIA
     Dosage: 6 gm (3 gm, 2 in 1), oral
     Route: 048
     Dates: start: 20110902
  2. XYREM (500 MILLIGRAM/ MILLILITERS, SOLUTION) (SODIUM OXYBATE) [Suspect]
     Indication: FIBROMYALGIA
     Route: 048
  3. XYREM (500 MILLIGRAM/ MILLILITERS, SOLUTION) (SODIUM OXYBATE) [Suspect]
     Indication: FIBROMYALGIA
     Dosage: 9 gm (4.5 gm, 2 in 1 D), Oral
     Route: 048
     Dates: start: 20120224, end: 20120609
  4. ACETAMINOPHEN W/HYDROCODONE [Suspect]
  5. CARISOPRODOL [Suspect]
  6. ZOLPIDEM [Concomitant]

REACTIONS (3)
  - Death [None]
  - Multiple injuries [None]
  - Road traffic accident [None]
